FAERS Safety Report 4528513-2 (Version None)
Quarter: 2004Q4

REPORT INFORMATION
  Report Type: 
  Country: None (occurrence: None)
  Receive Date: 20041216
  Receipt Date: 20040209
  Transmission Date: 20050328
  Serious: No
  Sender: FDA-Public Use
  Company Number: US-BRISTOL-MYERS SQUIBB COMPANY-12501698

PATIENT
  Age: 84 Year
  Sex: Female

DRUGS (8)
  1. CHOLESTYRAMINE [Suspect]
     Route: 048
  2. DETROL [Concomitant]
  3. ATENOLOL [Concomitant]
  4. GEMFIBROZIL [Concomitant]
  5. LEVOXYL [Concomitant]
  6. GLIPIZIDE [Concomitant]
  7. METFORMIN HCL [Concomitant]
  8. POTASSIUM [Concomitant]

REACTIONS (1)
  - UNEVALUABLE EVENT [None]
